FAERS Safety Report 10923007 (Version 1)
Quarter: 2015Q1

REPORT INFORMATION
  Report Type: Spontaneous
  Country: CN (occurrence: CN)
  Receive Date: 20150317
  Receipt Date: 20150317
  Transmission Date: 20150721
  Serious: Yes (Other)
  Sender: FDA-Public Use
  Company Number: CN-BAXTER-2015BAX013314

PATIENT
  Age: 49 Year
  Sex: Female
  Weight: 65 kg

DRUGS (4)
  1. DEXAMETHASONE. [Concomitant]
     Active Substance: DEXAMETHASONE
     Indication: ANAPHYLAXIS TREATMENT
  2. 0.9% SODIUM CHLORIDE INJECTION [Suspect]
     Active Substance: SODIUM CHLORIDE
     Indication: MEDICATION DILUTION
     Route: 041
     Dates: start: 20140721, end: 20140721
  3. LIERFAN [Suspect]
     Active Substance: HERBALS
     Indication: IMMUNE ENHANCEMENT THERAPY
     Route: 041
     Dates: start: 20140721, end: 20140721
  4. DEXAMETHASONE. [Concomitant]
     Active Substance: DEXAMETHASONE
     Indication: PREMEDICATION
     Route: 040
     Dates: start: 20140721

REACTIONS (4)
  - Pain [Recovering/Resolving]
  - Hypersensitivity [Recovering/Resolving]
  - Neck pain [None]
  - Chest pain [None]

NARRATIVE: CASE EVENT DATE: 20140721
